FAERS Safety Report 6279297-1 (Version None)
Quarter: 2009Q3

REPORT INFORMATION
  Report Type: 
  Country: None (occurrence: None)
  Receive Date: 20090723
  Receipt Date: 20081229
  Transmission Date: 20100115
  Serious: No
  Sender: FDA-Public Use
  Company Number: US-AMGEN-KDL326215

PATIENT
  Sex: Female

DRUGS (6)
  1. PROCRIT [Suspect]
     Indication: PRE-EXISTING DISEASE
     Dates: start: 20080701
  2. INTERFERON [Concomitant]
     Dates: start: 20080701
  3. RIBAVIRIN [Concomitant]
     Dates: start: 20080701
  4. CYMBALTA [Concomitant]
  5. DIOVAN [Concomitant]
  6. K-DUR [Concomitant]

REACTIONS (2)
  - INJECTION SITE PAIN [None]
  - TYPE 2 DIABETES MELLITUS [None]
